FAERS Safety Report 6172626-9 (Version None)
Quarter: 2009Q2

REPORT INFORMATION
  Report Type: 
  Country: None (occurrence: None)
  Receive Date: 20090430
  Receipt Date: 20090212
  Transmission Date: 20091009
  Serious: Yes (Other)
  Sender: FDA-Public Use
  Company Number: FR-ELI_LILLY_AND_COMPANY-FR200902004616

PATIENT
  Sex: Female

DRUGS (1)
  1. BYETTA [Suspect]
     Dosage: 5 UG, UNKNOWN
     Route: 058

REACTIONS (7)
  - BLINDNESS TRANSIENT [None]
  - FEEDING DISORDER [None]
  - GAIT DISTURBANCE [None]
  - RENAL FAILURE [None]
  - RESPIRATORY FAILURE [None]
  - SLEEP DISORDER [None]
  - URINARY INCONTINENCE [None]
